FAERS Safety Report 16364787 (Version 1)
Quarter: 2019Q2

REPORT INFORMATION
  Report Type: Spontaneous
  Country: JP (occurrence: JP)
  Receive Date: 20190529
  Receipt Date: 20190529
  Transmission Date: 20190711
  Serious: Yes (Life-Threatening, Congenital Anomaly)
  Sender: FDA-Public Use
  Company Number: JP-SUN PHARMACEUTICAL INDUSTRIES LTD-2019R1-208878

PATIENT
  Sex: Female
  Weight: 2.37 kg

DRUGS (4)
  1. APRESOLINE HYDROCHLORIDE [Suspect]
     Active Substance: HYDRALAZINE HYDROCHLORIDE
     Indication: HYPERTENSION
     Dosage: 60 MILLIGRAM, DAILY
     Route: 064
  2. APRESOLINE HYDROCHLORIDE [Suspect]
     Active Substance: HYDRALAZINE HYDROCHLORIDE
     Dosage: 90 MILLIGRAM, DAILY
     Route: 064
  3. ARGATROBAN HYDRATE [Suspect]
     Active Substance: ARGATROBAN
     Indication: VENOUS THROMBOSIS LIMB
     Dosage: 0.8 ?, DAILY
     Route: 064
  4. FAMOTIDINE. [Suspect]
     Active Substance: FAMOTIDINE
     Indication: PRODUCT USED FOR UNKNOWN INDICATION
     Dosage: UNK
     Route: 064

REACTIONS (6)
  - Foetal exposure timing unspecified [Unknown]
  - Bradycardia foetal [Unknown]
  - Foetal acidosis [Unknown]
  - Premature baby [Unknown]
  - Apgar score low [Unknown]
  - Intellectual disability [Unknown]
